FAERS Safety Report 17934041 (Version 2)
Quarter: 2022Q1

REPORT INFORMATION
  Report Type: Spontaneous
  Country: US (occurrence: US)
  Receive Date: 20200624
  Receipt Date: 20220217
  Transmission Date: 20220423
  Serious: Yes (Other)
  Sender: FDA-Public Use
  Company Number: US-GILEAD-2020-0474670

PATIENT
  Sex: Female
  Weight: 52.608 kg

DRUGS (77)
  1. TRUVADA [Suspect]
     Active Substance: EMTRICITABINE\TENOFOVIR DISOPROXIL FUMARATE
     Indication: HIV infection
     Dosage: UNK
     Route: 048
     Dates: start: 201812, end: 201901
  2. ATRIPLA [Suspect]
     Active Substance: EFAVIRENZ\EMTRICITABINE\TENOFOVIR DISOPROXIL FUMARATE
     Indication: HIV infection
     Dosage: 1 DOSAGE FORM, QD
     Route: 048
     Dates: start: 2010, end: 201910
  3. GENVOYA [Suspect]
     Active Substance: COBICISTAT\ELVITEGRAVIR\EMTRICITABINE\TENOFOVIR ALAFENAMIDE FUMARATE
     Indication: HIV infection
     Route: 048
  4. HYDROXYZINE [Concomitant]
     Active Substance: HYDROXYZINE HYDROCHLORIDE
  5. CYMBALTA [Concomitant]
     Active Substance: DULOXETINE HYDROCHLORIDE
  6. ZYPREXA [Concomitant]
     Active Substance: OLANZAPINE
  7. OMEPRAZOLE [Concomitant]
     Active Substance: OMEPRAZOLE
  8. HYDROCODONE BITARTRATE AND ACETAMINOPHEN [Concomitant]
     Active Substance: ACETAMINOPHEN\HYDROCODONE BITARTRATE
  9. CLONAZEPAM [Concomitant]
     Active Substance: CLONAZEPAM
  10. AMOXICILLIN [Concomitant]
     Active Substance: AMOXICILLIN
  11. ZOLPIDEM [Concomitant]
     Active Substance: ZOLPIDEM TARTRATE
  12. IBUPROFEN [Concomitant]
     Active Substance: IBUPROFEN
  13. NITROSTAT [Concomitant]
     Active Substance: NITROGLYCERIN
  14. SEROQUEL [Concomitant]
     Active Substance: QUETIAPINE FUMARATE
  15. BUPROPION [Concomitant]
     Active Substance: BUPROPION
  16. NITROFURANTOIN [Concomitant]
     Active Substance: NITROFURANTOIN
  17. MEDROXYPROGESTERONE [Concomitant]
     Active Substance: MEDROXYPROGESTERONE
  18. TRAMADOL [Concomitant]
     Active Substance: TRAMADOL
  19. OXYCODONE AND ACETAMINOPHEN [Concomitant]
     Active Substance: ACETAMINOPHEN\OXYCODONE HYDROCHLORIDE
  20. VANCOMYCIN [Concomitant]
     Active Substance: VANCOMYCIN
  21. OLANZAPINE [Concomitant]
     Active Substance: OLANZAPINE
  22. NORETHINDRONE ACETATE [Concomitant]
     Active Substance: NORETHINDRONE ACETATE
  23. IPRATROPIUM BROMIDE AND ALBUTEROL SULFATE [Concomitant]
     Active Substance: ALBUTEROL SULFATE\IPRATROPIUM BROMIDE
  24. POLYETHYLENE GLYCOL 3350 [Concomitant]
     Active Substance: POLYETHYLENE GLYCOL 3350
  25. MAGNESIUM CITRATE [Concomitant]
     Active Substance: MAGNESIUM CITRATE
  26. BISACODYL [Concomitant]
     Active Substance: BISACODYL
  27. NICOTINE [Concomitant]
     Active Substance: NICOTINE
  28. MYRBETRIQ [Concomitant]
     Active Substance: MIRABEGRON
  29. XIFAXAN [Concomitant]
     Active Substance: RIFAXIMIN
  30. NATROBA [Concomitant]
     Active Substance: SPINOSAD
  31. TOLTERODINE [Concomitant]
     Active Substance: TOLTERODINE
  32. TRAZODONE [Concomitant]
     Active Substance: TRAZODONE HYDROCHLORIDE
  33. NEXIUM I.V. [Concomitant]
     Active Substance: ESOMEPRAZOLE SODIUM
  34. VESICARE [Concomitant]
     Active Substance: SOLIFENACIN SUCCINATE
  35. ISOSORBIDE MONONITRATE [Concomitant]
     Active Substance: ISOSORBIDE MONONITRATE
  36. POTASSIUM CHLORIDE [Concomitant]
     Active Substance: POTASSIUM CHLORIDE
  37. VERAPAMIL [Concomitant]
     Active Substance: VERAPAMIL HYDROCHLORIDE
  38. GAVILYTE N [Concomitant]
  39. FLEET ENEMA [Concomitant]
     Active Substance: SODIUM PHOSPHATE, DIBASIC\SODIUM PHOSPHATE, MONOBASIC
  40. PROAIR HFA [Concomitant]
     Active Substance: ALBUTEROL SULFATE
  41. PROMETHAZINE [Concomitant]
     Active Substance: PROMETHAZINE HYDROCHLORIDE
  42. SUMATRIPTAN [Concomitant]
     Active Substance: SUMATRIPTAN
  43. DOXYCYCLINE [Concomitant]
     Active Substance: DOXYCYCLINE
  44. BRINTELLIX [Concomitant]
     Active Substance: VORTIOXETINE HYDROBROMIDE
  45. BUSPIRONE [Concomitant]
     Active Substance: BUSPIRONE HYDROCHLORIDE
  46. CARISOPRODOL [Concomitant]
     Active Substance: CARISOPRODOL
  47. PREMARIN [Concomitant]
     Active Substance: ESTROGENS, CONJUGATED
  48. FLOVENT [Concomitant]
     Active Substance: FLUTICASONE PROPIONATE
  49. VENTOLIN HFA [Concomitant]
     Active Substance: ALBUTEROL SULFATE
  50. SPIRIVA [Concomitant]
     Active Substance: TIOTROPIUM BROMIDE MONOHYDRATE
  51. PRAZOSIN [Concomitant]
     Active Substance: PRAZOSIN
  52. FLONASE [Concomitant]
     Active Substance: FLUTICASONE PROPIONATE
  53. TRINTELLIX [Concomitant]
     Active Substance: VORTIOXETINE HYDROBROMIDE
  54. CEPHALEXIN [Concomitant]
     Active Substance: CEPHALEXIN
  55. PREDNISONE [Concomitant]
     Active Substance: PREDNISONE
  56. QUETIAPINE [Concomitant]
     Active Substance: QUETIAPINE
  57. ESTRADIOL [Concomitant]
     Active Substance: ESTRADIOL
  58. BENZONATATE [Concomitant]
     Active Substance: BENZONATATE
  59. METHYLPREDNISOLONE [Concomitant]
     Active Substance: METHYLPREDNISOLONE
  60. ALBUTEROL SULFATE [Concomitant]
     Active Substance: ALBUTEROL SULFATE
  61. AMOXICILLIN\CLAVULANIC ACID [Concomitant]
     Active Substance: AMOXICILLIN\CLAVULANIC ACID
  62. ESCITALOPRAM [Concomitant]
     Active Substance: ESCITALOPRAM OXALATE
  63. DIVALPROEX SODIUM [Concomitant]
     Active Substance: DIVALPROEX SODIUM
  64. RISPERIDONE [Concomitant]
     Active Substance: RISPERIDONE
  65. CLINDAMYCIN [Concomitant]
     Active Substance: CLINDAMYCIN
  66. JULUCA [Concomitant]
     Active Substance: DOLUTEGRAVIR SODIUM\RILPIVIRINE HYDROCHLORIDE
  67. CYCLOBENZAPRINE HYDROCHLORIDE [Concomitant]
     Active Substance: CYCLOBENZAPRINE HYDROCHLORIDE
  68. ISENTRESS [Concomitant]
     Active Substance: RALTEGRAVIR POTASSIUM
  69. KALETRA [Concomitant]
     Active Substance: LOPINAVIR\RITONAVIR
  70. KLONOPIN [Concomitant]
     Active Substance: CLONAZEPAM
  71. VICODIN [Concomitant]
     Active Substance: ACETAMINOPHEN\HYDROCODONE BITARTRATE
  72. LINAGLIPTIN [Concomitant]
     Active Substance: LINAGLIPTIN
  73. DULOXETINE [Concomitant]
     Active Substance: DULOXETINE
  74. MARINOL [Concomitant]
     Active Substance: DRONABINOL
  75. MEROPENEM [Concomitant]
     Active Substance: MEROPENEM
  76. ROCEPHIN [Concomitant]
     Active Substance: CEFTRIAXONE SODIUM
  77. PHENERGAN [Concomitant]
     Active Substance: PROMETHAZINE HYDROCHLORIDE

REACTIONS (6)
  - Osteoporosis [Unknown]
  - Bone density decreased [Unknown]
  - Tooth loss [Unknown]
  - Abdominal pain upper [Unknown]
  - Decreased appetite [Unknown]
  - Headache [Unknown]
